FAERS Safety Report 4788708-X (Version None)
Quarter: 2005Q3

REPORT INFORMATION
  Report Type: 
  Country: None (occurrence: None)
  Receive Date: 20050915
  Receipt Date: 20050720
  Transmission Date: 20060218
  Serious: No
  Sender: FDA-Public Use
  Company Number: BDI-007384

PATIENT
  Age: 41 Year
  Sex: Male
  Weight: 109 kg

DRUGS (2)
  1. MULTIHANCE [Suspect]
     Indication: CONGENITAL CYSTIC KIDNEY DISEASE
     Dosage: 20 ML ONCE IV
     Route: 042
     Dates: start: 20050708, end: 20050708
  2. MULTIHANCE [Suspect]
     Indication: NUCLEAR MAGNETIC RESONANCE IMAGING
     Dosage: 20 ML ONCE IV
     Route: 042
     Dates: start: 20050708, end: 20050708

REACTIONS (2)
  - NAUSEA [None]
  - VOMITING [None]
